FAERS Safety Report 23480635 (Version 2)
Quarter: 2024Q1

REPORT INFORMATION
  Report Type: Spontaneous
  Country: US (occurrence: US)
  Receive Date: 20240205
  Receipt Date: 20240216
  Transmission Date: 20240410
  Serious: No
  Sender: FDA-Public Use
  Company Number: US-LEO Pharma-367347

PATIENT
  Age: 48 Year
  Sex: Male

DRUGS (1)
  1. ADBRY [Suspect]
     Active Substance: TRALOKINUMAB-LDRM
     Indication: Dermatitis atopic
     Dosage: 600 MG LOADING DOSE, STARTED WITH 4 INJECTIONS FOR THE INITIAL/LOADING DOSE
     Route: 058
     Dates: start: 202311

REACTIONS (2)
  - Joint injury [Unknown]
  - Limb injury [Unknown]
